FAERS Safety Report 16884518 (Version 3)
Quarter: 2020Q2

REPORT INFORMATION
  Report Type: Spontaneous
  Country: US (occurrence: US)
  Receive Date: 20191004
  Receipt Date: 20200615
  Transmission Date: 20200713
  Serious: Yes (Death, Hospitalization, Other)
  Sender: FDA-Public Use
  Company Number: US-CATALYST PHARMACEUTICALS, INC-2019CAT00442

PATIENT
  Age: 81 Year
  Sex: Male
  Weight: 95.24 kg

DRUGS (10)
  1. FIRDAPSE [Suspect]
     Active Substance: AMIFAMPRIDINE
     Indication: MYASTHENIC SYNDROME
     Dosage: 20 MG, 3X/DAY
     Route: 048
     Dates: start: 20190420
  2. CLONIDINE. [Concomitant]
     Active Substance: CLONIDINE
  3. GABAPENTIN. [Concomitant]
     Active Substance: GABAPENTIN
  4. HYDROCHLOROTHIAZIDE. [Concomitant]
     Active Substance: HYDROCHLOROTHIAZIDE
  5. GLIPIZIDE. [Concomitant]
     Active Substance: GLIPIZIDE
  6. CITALOPRAM [Concomitant]
     Active Substance: CITALOPRAM HYDROBROMIDE
  7. MULTIVITAMIN [Concomitant]
     Active Substance: VITAMINS
  8. ATORVASTATIN [Concomitant]
     Active Substance: ATORVASTATIN
  9. LOSARTAN. [Concomitant]
     Active Substance: LOSARTAN
  10. BISOPROLOL [Concomitant]
     Active Substance: BISOPROLOL

REACTIONS (7)
  - Cardiac operation [Unknown]
  - Atrial fibrillation [Unknown]
  - Acute kidney injury [Unknown]
  - Sepsis [Unknown]
  - Respiratory failure [Unknown]
  - COVID-19 pneumonia [Fatal]
  - Normal pressure hydrocephalus [Not Recovered/Not Resolved]

NARRATIVE: CASE EVENT DATE: 2020
